FAERS Safety Report 20207317 (Version 1)
Quarter: 2021Q4

REPORT INFORMATION
  Report Type: Spontaneous
  Country: US (occurrence: US)
  Receive Date: 20211220
  Receipt Date: 20211220
  Transmission Date: 20220303
  Serious: No
  Sender: FDA-Public Use
  Company Number: US-NOVEN PHARMACEUTICALS, INC.-2021US002147

PATIENT
  Age: 62 Year
  Sex: Female

DRUGS (2)
  1. ESTRADIOL [Suspect]
     Active Substance: ESTRADIOL
     Indication: Oestrogen replacement therapy
     Dosage: 0.1 MG/DAY, UNK
     Route: 062
  2. TRETINOIN [Concomitant]
     Active Substance: TRETINOIN
     Indication: Skin wrinkling
     Route: 061

REACTIONS (3)
  - Product administration error [Not Recovered/Not Resolved]
  - Device breakage [Not Recovered/Not Resolved]
  - No adverse event [Unknown]

NARRATIVE: CASE EVENT DATE: 20210303
